FAERS Safety Report 8359439-4 (Version None)
Quarter: 2012Q2

REPORT INFORMATION
  Report Type: 
  Country: None (occurrence: None)
  Receive Date: 20120515
  Receipt Date: 20120507
  Transmission Date: 20120825
  Serious: Yes (Hospitalization, Other)
  Sender: FDA-Public Use
  Company Number: US-BAYER-2011-081865

PATIENT
  Age: 34 Year
  Sex: Female
  Weight: 81.633 kg

DRUGS (13)
  1. 4-WAY NASAL [Concomitant]
     Indication: SINUS DISORDER
  2. COUMADIN [Concomitant]
  3. YASMIN [Suspect]
     Indication: MENSTRUATION IRREGULAR
  4. YASMIN [Suspect]
     Indication: CONTRACEPTION
     Dosage: UNK
     Route: 048
     Dates: start: 20040910, end: 20080701
  5. TYLENOL (CAPLET) [Concomitant]
     Indication: PAIN
  6. VERAPAMIL [Concomitant]
  7. PROZAC [Concomitant]
  8. ZOLOFT [Concomitant]
  9. TYLENOL (CAPLET) [Concomitant]
     Indication: MIGRAINE
  10. METHADONE HCL [Concomitant]
  11. METHADONE HCL [Concomitant]
  12. VERAPAMIL [Concomitant]
  13. PROZAC [Concomitant]

REACTIONS (8)
  - HAEMORRHOIDS [None]
  - VENOUS INSUFFICIENCY [None]
  - INJURY [None]
  - DEPRESSION [None]
  - GALLBLADDER DISORDER [None]
  - PAIN [None]
  - PHLEBITIS SUPERFICIAL [None]
  - CHOLECYSTITIS CHRONIC [None]
